FAERS Safety Report 8529448-0 (Version None)
Quarter: 2012Q3

REPORT INFORMATION
  Report Type: 
  Country: None (occurrence: None)
  Receive Date: 20120723
  Receipt Date: 20120712
  Transmission Date: 20120928
  Serious: Yes (Hospitalization)
  Sender: FDA-Public Use
  Company Number: US-BAYER-2012-071486

PATIENT
  Age: 36 Year
  Sex: Female
  Weight: 81.633 kg

DRUGS (22)
  1. AMITIZA [Concomitant]
     Dosage: 8 ?G, 1 BID
     Route: 048
     Dates: start: 20101202, end: 20110301
  2. METFORMIN HYDROCHLORIDE [Concomitant]
     Dosage: 1000 MG, BID
     Route: 048
     Dates: start: 20101202, end: 20110301
  3. MULTI-VITAMIN [Concomitant]
     Dosage: DAILY
     Route: 048
     Dates: start: 20101202, end: 20110301
  4. YASMIN [Suspect]
  5. PLAQUENIL [Concomitant]
     Dosage: 200 MG DAY
     Route: 048
     Dates: start: 20110202, end: 20110301
  6. FLUCONAZOLE [Concomitant]
     Dosage: 150 MG, UNK
     Route: 048
     Dates: start: 20101231
  7. DROSPIRENONE AND ETHINYL ESTRADIOL [Suspect]
  8. LYRICA [Concomitant]
     Dosage: 150 MG, BID
     Route: 048
     Dates: start: 20110202, end: 20110301
  9. LORTAB [Concomitant]
     Indication: PAIN
     Dosage: 10-500 MG,1 EVERY 8-12 HOURS AS NEEDED
     Route: 048
     Dates: start: 20101202, end: 20110301
  10. EXCEDRIN EXTRA STRENGTH TABLETS [Concomitant]
     Dosage: 250-250-65 MG
     Route: 048
     Dates: start: 20101202, end: 20110301
  11. SINGULAIR [Concomitant]
     Dosage: 10 MG, DAY
     Route: 048
     Dates: start: 20101202, end: 20110301
  12. LYRICA [Concomitant]
     Dosage: 150 MG, TID
     Route: 048
     Dates: start: 20101202, end: 20110202
  13. CYMBALTA [Concomitant]
     Dosage: 60 MG, BID
     Route: 048
     Dates: start: 20101202, end: 20110301
  14. HYDROXYCHLOROQUINE SULFATE [Concomitant]
     Dosage: 200 MG, UNK
     Route: 048
     Dates: start: 20110216
  15. GLIMEPIRIDE [Concomitant]
     Dosage: 1 MG DAY
     Route: 048
     Dates: start: 20101202, end: 20110202
  16. VOLTAREN [Concomitant]
     Dosage: 1 %, GEL
     Route: 061
     Dates: start: 20101202, end: 20110202
  17. QVAR 40 [Concomitant]
     Dosage: 80 MCG
     Dates: start: 20101231
  18. YAZ [Suspect]
  19. LORTAB [Concomitant]
     Dosage: 10-500 MG 1 EVERY 4 HOURS AS NEEDED
     Route: 048
     Dates: start: 20110301
  20. METHANAMINE/METHYLEN BLUE/SALICYLATE/SODIUM PHOS/HYOSCY [Concomitant]
     Dosage: UNK
     Route: 048
     Dates: start: 20101202, end: 20110301
  21. LYRICA [Concomitant]
     Dosage: 50 MG DAY
     Route: 048
     Dates: start: 20110301
  22. CYMBALTA [Concomitant]
     Dosage: 60 MG, DAY
     Route: 048
     Dates: start: 20110301

REACTIONS (2)
  - DEEP VEIN THROMBOSIS [None]
  - PULMONARY EMBOLISM [None]
